FAERS Safety Report 5467483-X (Version None)
Quarter: 2007Q3

REPORT INFORMATION
  Report Type: 
  Country: None (occurrence: None)
  Receive Date: 20070925
  Receipt Date: 20070912
  Transmission Date: 20080115
  Serious: Yes (Other)
  Sender: FDA-Public Use
  Company Number: US-GENENTECH-245094

PATIENT
  Sex: Female
  Weight: 111.93 kg

DRUGS (13)
  1. AVASTIN [Suspect]
     Indication: PERITONEAL CARCINOMA
     Dosage: 842 MG, Q3W
     Route: 042
     Dates: start: 20070713
  2. AVASTIN [Suspect]
     Dosage: 847 MG, Q3W
     Route: 042
     Dates: start: 20070803
  3. AVASTIN [Suspect]
     Dosage: 841 MG, Q3W
     Route: 042
     Dates: start: 20070824
  4. SYNTHROID [Concomitant]
     Indication: DRUG USE FOR UNKNOWN INDICATION
  5. DILANTIN [Concomitant]
     Indication: DRUG USE FOR UNKNOWN INDICATION
  6. LASIX [Concomitant]
     Indication: DRUG USE FOR UNKNOWN INDICATION
  7. PROTONIX [Concomitant]
     Indication: DRUG USE FOR UNKNOWN INDICATION
  8. MS CONTIN [Concomitant]
     Indication: DRUG USE FOR UNKNOWN INDICATION
  9. OXYCODONE HCL [Concomitant]
     Indication: DRUG USE FOR UNKNOWN INDICATION
     Route: 048
  10. POTASSIUM CHLORIDE [Concomitant]
     Indication: DRUG USE FOR UNKNOWN INDICATION
  11. NYSTATIN ORAL SUSP [Concomitant]
     Indication: DRUG USE FOR UNKNOWN INDICATION
     Route: 048
  12. ALOXI [Concomitant]
     Indication: DRUG USE FOR UNKNOWN INDICATION
     Dosage: 0.2 MG, UNK
     Route: 042
  13. BENADRYL [Concomitant]
     Indication: DRUG USE FOR UNKNOWN INDICATION
     Dosage: 25 MG, UNK

REACTIONS (2)
  - FUNGAL INFECTION [None]
  - GINGIVAL RECESSION [None]
